FAERS Safety Report 17247190 (Version 2)
Quarter: 2020Q1

REPORT INFORMATION
  Report Type: Spontaneous
  Country: US (occurrence: US)
  Receive Date: 20200108
  Receipt Date: 20200117
  Transmission Date: 20200409
  Serious: No
  Sender: FDA-Public Use
  Company Number: US-PFIZER INC-2020004165

PATIENT
  Age: 56 Year
  Sex: Female
  Weight: 68.4 kg

DRUGS (5)
  1. ADVIL LIQUI-GELS [Suspect]
     Active Substance: IBUPROFEN
     Indication: MUSCLE SPASMS
     Dosage: UNK, 1X/DAY (ONCE A DAY IN THE MORNING)
  2. ADVIL LIQUI-GELS [Suspect]
     Active Substance: IBUPROFEN
     Indication: DYSURIA
  3. ATIVAN [Concomitant]
     Active Substance: LORAZEPAM
     Indication: PANIC ATTACK
     Dosage: 2 MG, 1X/DAY (TWO AT NIGHT )
  4. GEODON [ZIPRASIDONE HYDROCHLORIDE] [Concomitant]
     Indication: MENTAL DISORDER
     Dosage: UNK, 2X/DAY(40 DURING THE DAY AND 40 AT NIGHT)
  5. ADVIL LIQUI-GELS [Suspect]
     Active Substance: IBUPROFEN
     Indication: URINARY TRACT INFECTION
     Dosage: 200 MG, 1X/DAY
     Dates: start: 201812

REACTIONS (2)
  - Urine alcohol test positive [Unknown]
  - Product use issue [Unknown]

NARRATIVE: CASE EVENT DATE: 201812
